FAERS Safety Report 8848675 (Version 1)
Quarter: 2012Q4

REPORT INFORMATION
  Report Type: Spontaneous
  Country: GB (occurrence: None)
  Receive Date: 20121015
  Receipt Date: 20121015
  Transmission Date: 20130627
  Serious: Yes (Other)
  Sender: FDA-Public Use
  Company Number: 2012GMK003961

PATIENT
  Age: 57 Year
  Sex: Female
  Weight: 51 kg

DRUGS (7)
  1. TOPIRAMATE [Suspect]
     Indication: MOOD VARIABLE
     Dosage: 25 mg, UNK, Oral
     Route: 048
     Dates: start: 20120722
  2. TOPIRAMATE [Suspect]
     Indication: MOOD VARIABLE
     Route: 048
     Dates: end: 20120817
  3. LAMOTRIGINE [Suspect]
     Indication: MOOD VARIABLE
     Dosage: 25 mg, UNK, Oral
     Route: 048
     Dates: start: 20120610
  4. LAMOTRIGINE [Suspect]
     Indication: MOOD VARIABLE
     Dosage: LAMOTRIGINE Regimen #2 50 mg, UNK, Oral
     Route: 048
     Dates: end: 20120617
  5. DULOXETINE (DULOXETINE) [Concomitant]
  6. LEVOTHYROXINE (LEVOTHYROXINE) [Concomitant]
  7. ZOPICLONE (ZOPICLONE) [Concomitant]

REACTIONS (4)
  - Mouth ulceration [None]
  - Oral mucosal exfoliation [None]
  - Poikilocytosis [None]
  - Medication error [None]
